FAERS Safety Report 15202199 (Version 2)
Quarter: 2018Q3

REPORT INFORMATION
  Report Type: Report from Study
  Country: US (occurrence: US)
  Receive Date: 20180726
  Receipt Date: 20180802
  Transmission Date: 20181010
  Serious: Yes (Hospitalization)
  Sender: FDA-Public Use
  Company Number: US-PFIZER INC-2018297546

PATIENT
  Age: 53 Year
  Sex: Female
  Weight: 51.7 kg

DRUGS (4)
  1. IBRANCE [Suspect]
     Active Substance: PALBOCICLIB
     Indication: BREAST CANCER METASTATIC
     Dosage: 125 MG, DAILY
     Route: 048
     Dates: start: 20180701
  2. VENLAFAXINE [Concomitant]
     Active Substance: VENLAFAXINE HYDROCHLORIDE
     Indication: ANXIETY
     Dosage: 37.5 MG, DAILY
     Dates: start: 20140505
  3. ZOMETA [Concomitant]
     Active Substance: ZOLEDRONIC ACID
     Indication: HYPOCALCAEMIA
     Dosage: UNK
     Dates: start: 20170824
  4. AMBIEN [Concomitant]
     Active Substance: ZOLPIDEM TARTRATE
     Indication: INSOMNIA
     Dosage: UNK
     Dates: start: 20140505

REACTIONS (1)
  - Anaemia [Recovered/Resolved]

NARRATIVE: CASE EVENT DATE: 20180718
